FAERS Safety Report 15738852 (Version 1)
Quarter: 2018Q4

REPORT INFORMATION
  Report Type: Report from Study
  Country: None (occurrence: DE)
  Receive Date: 20181219
  Receipt Date: 20181219
  Transmission Date: 20190205
  Serious: Yes (Other)
  Sender: FDA-Public Use
  Company Number: DE-RICON PHARMA, LLC-RIC201812-001169

PATIENT
  Age: 70 Year
  Sex: Female

DRUGS (2)
  1. IBUPROFEN. [Suspect]
     Active Substance: IBUPROFEN
  2. DICLOFENAC [Suspect]
     Active Substance: DICLOFENAC

REACTIONS (1)
  - Dependence [Unknown]
